FAERS Safety Report 15696647 (Version 1)
Quarter: 2018Q4

REPORT INFORMATION
  Report Type: Report from Study
  Country: US (occurrence: US)
  Receive Date: 20181206
  Receipt Date: 20181206
  Transmission Date: 20190205
  Serious: Yes (Other)
  Sender: FDA-Public Use
  Company Number: US-JNJFOC-20181203303

PATIENT
  Age: 76 Year
  Sex: Male

DRUGS (13)
  1. IMBRUVICA [Suspect]
     Active Substance: IBRUTINIB
     Indication: CHRONIC LYMPHOCYTIC LEUKAEMIA
     Route: 048
     Dates: start: 20170921, end: 20180501
  2. LOPRESSOR [Concomitant]
     Active Substance: METOPROLOL TARTRATE
  3. LIPITOR [Concomitant]
     Active Substance: ATORVASTATIN CALCIUM
  4. VITAMIN B NOS [Concomitant]
     Active Substance: VITAMIN B
  5. ZOFRAN [Concomitant]
     Active Substance: ONDANSETRON HYDROCHLORIDE
  6. ARICEPT [Concomitant]
     Active Substance: DONEPEZIL HYDROCHLORIDE
  7. MYRBETRIQ [Concomitant]
     Active Substance: MIRABEGRON
  8. IMBRUVICA [Suspect]
     Active Substance: IBRUTINIB
     Indication: CHRONIC LYMPHOCYTIC LEUKAEMIA
     Route: 048
     Dates: start: 20180502
  9. ASPIRE [Concomitant]
     Active Substance: ASPIRIN
  10. NITROSTAT [Concomitant]
     Active Substance: NITROGLYCERIN
  11. CELEXA [Concomitant]
     Active Substance: CITALOPRAM HYDROBROMIDE
  12. PREDNISONE. [Concomitant]
     Active Substance: PREDNISONE
  13. ELIQUIS [Concomitant]
     Active Substance: APIXABAN

REACTIONS (4)
  - Rib fracture [Unknown]
  - Orthostatic hypertension [Unknown]
  - Incorrect dose administered [Unknown]
  - Off label use [Unknown]

NARRATIVE: CASE EVENT DATE: 20180502
